FAERS Safety Report 16965201 (Version 1)
Quarter: 2019Q4

REPORT INFORMATION
  Report Type: Spontaneous
  Country: GE (occurrence: GE)
  Receive Date: 20191028
  Receipt Date: 20191028
  Transmission Date: 20200122
  Serious: Yes (Life-Threatening, Hospitalization, Other)
  Sender: FDA-Public Use
  Company Number: GE-SCIEGEN PHARMACEUTICALS INC-2019SCILIT00300

PATIENT
  Age: 24 Year
  Sex: Female

DRUGS (15)
  1. FUROSEMIDE. [Suspect]
     Active Substance: FUROSEMIDE
  2. LISINOPRIL. [Suspect]
     Active Substance: LISINOPRIL
  3. EPINEPHRINE. [Interacting]
     Active Substance: EPINEPHRINE
  4. AMLODIPINE [Suspect]
     Active Substance: AMLODIPINE BESYLATE
  5. ASPIRIN. [Suspect]
     Active Substance: ASPIRIN
  6. NOREPINEPHRINE. [Interacting]
     Active Substance: NOREPINEPHRINE
  7. SODIUM CHLORIDE. [Interacting]
     Active Substance: SODIUM CHLORIDE
  8. ACTIVATED CHARCOAL. [Interacting]
     Active Substance: ACTIVATED CHARCOAL
  9. SPIRONOLACTONE. [Suspect]
     Active Substance: SPIRONOLACTONE
  10. CARVEDILOL. [Suspect]
     Active Substance: CARVEDILOL
  11. VASOPRESSIN. [Interacting]
     Active Substance: VASOPRESSIN
  12. HYDROCORTISONE SODIUM SUCCINATE [Interacting]
     Active Substance: HYDROCORTISONE SODIUM SUCCINATE
  13. HYDRALAZINE HYDROCHLORIDE. [Suspect]
     Active Substance: HYDRALAZINE HYDROCHLORIDE
  14. ISOSORBIDE MONONITRATE. [Suspect]
     Active Substance: ISOSORBIDE MONONITRATE
  15. GLUCAGON. [Interacting]
     Active Substance: GLUCAGON

REACTIONS (7)
  - Suicide attempt [Unknown]
  - Acute kidney injury [Unknown]
  - Intentional overdose [Unknown]
  - Hypoperfusion [Unknown]
  - Hypotension [Unknown]
  - Lethargy [Unknown]
  - Shock [Unknown]
